FAERS Safety Report 13297298 (Version 1)
Quarter: 2017Q1

REPORT INFORMATION
  Report Type: Spontaneous
  Country: US (occurrence: US)
  Receive Date: 20170304
  Receipt Date: 20170304
  Transmission Date: 20170428
  Serious: Yes (Other)
  Sender: FDA-Public Use
  Company Number: None

PATIENT
  Age: 4 Year
  Sex: Male
  Weight: 20.25 kg

DRUGS (6)
  1. FLINTSTONE CHEWABLE VITAMIN [Concomitant]
  2. POLYETHYLENE GLYCOL [Suspect]
     Active Substance: POLYETHYLENE GLYCOLS
     Indication: CONSTIPATION
     Dosage: ?          QUANTITY:17 POWDER;?
     Route: 048
     Dates: start: 20151228, end: 20170220
  3. PEDIALAX CHEWABLE LAXATIVE [Concomitant]
  4. CULTURELLE PROBIOTIC POWDER [Concomitant]
  5. HYDROXYZINE [Concomitant]
     Active Substance: HYDROXYZINE HYDROCHLORIDE
  6. LORATADINE. [Concomitant]
     Active Substance: LORATADINE

REACTIONS (6)
  - Eating disorder [None]
  - Negativism [None]
  - Aggression [None]
  - Anger [None]
  - Agitation [None]
  - Energy increased [None]

NARRATIVE: CASE EVENT DATE: 20170110
